FAERS Safety Report 10866048 (Version 1)
Quarter: 2015Q1

REPORT INFORMATION
  Report Type: Report from Study
  Country: EG (occurrence: EG)
  Receive Date: 20150225
  Receipt Date: 20150225
  Transmission Date: 20150721
  Serious: Yes (Other)
  Sender: FDA-Public Use
  Company Number: EG-ROCHE-1514314

PATIENT
  Sex: Female

DRUGS (3)
  1. LEVOXINE [Concomitant]
     Active Substance: LEVOTHYROXINE SODIUM
     Indication: LOWER RESPIRATORY TRACT INFECTION
     Route: 048
     Dates: start: 20141216
  2. PEGASYS [Suspect]
     Active Substance: PEGINTERFERON ALFA-2A
     Indication: HEPATITIS C
     Route: 058
     Dates: start: 20141106
  3. COPEGUS [Suspect]
     Active Substance: RIBAVIRIN
     Indication: HEPATITIS C
     Route: 048
     Dates: start: 20141106

REACTIONS (3)
  - Constipation [Recovering/Resolving]
  - Cough [Not Recovered/Not Resolved]
  - White blood cell count decreased [Not Recovered/Not Resolved]

NARRATIVE: CASE EVENT DATE: 20141120
